FAERS Safety Report 6541124-2 (Version None)
Quarter: 2010Q1

REPORT INFORMATION
  Report Type: 
  Country: None (occurrence: None)
  Receive Date: 20100118
  Receipt Date: 20100107
  Transmission Date: 20100710
  Serious: Yes (Other)
  Sender: FDA-Public Use
  Company Number: US-PFIZER INC-2008076371

PATIENT
  Sex: Female
  Weight: 40 kg

DRUGS (10)
  1. MARAVIROC [Suspect]
     Indication: HIV INFECTION
     Dosage: 150 MG, 2X/DAY
     Route: 048
     Dates: start: 20080806
  2. MARAVIROC [Suspect]
     Dosage: 300 MG, 2X/DAY
     Route: 048
  3. DARUNAVIR [Concomitant]
     Indication: HIV INFECTION
     Dosage: 600 MG, 2X/DAY
     Route: 048
     Dates: start: 20080806, end: 20090721
  4. RALTEGRAVIR [Concomitant]
     Indication: HIV INFECTION
     Dosage: 400 MG, 2X/DAY
     Route: 048
     Dates: start: 20080806
  5. LIPITOR [Concomitant]
     Dosage: 1 TAB,Q DAY
     Route: 048
     Dates: start: 20070716
  6. BACTRIM DS [Concomitant]
     Dosage: 1 TAB,Q DAY
     Route: 048
     Dates: start: 19960202
  7. MOTRIN [Concomitant]
     Dosage: 1 TAB,3 X /DAY
     Route: 048
     Dates: start: 20020702
  8. VICODIN [Concomitant]
     Dosage: 1 TAB,2 X /DAY, PRN
     Dates: start: 20080905
  9. RITONAVIR [Concomitant]
     Route: 048
     Dates: start: 20080806
  10. TRUVADA [Concomitant]
     Dosage: 1 TAB,QDAY
     Route: 048
     Dates: start: 20080806

REACTIONS (1)
  - COLON CANCER [None]
